FAERS Safety Report 18143679 (Version 2)
Quarter: 2023Q4

REPORT INFORMATION
  Report Type: Other
  Country: US (occurrence: None)
  Receive Date: 20200812
  Receipt Date: 20231031
  Transmission Date: 20240110
  Serious: Yes (Hospitalization, Other)
  Sender: FDA-Public Use
  Company Number: US-ROCHE-2650754

PATIENT
  Age: 58 Year
  Sex: Male
  Weight: 100.79 kg

DRUGS (20)
  1. OCREVUS [Suspect]
     Active Substance: OCRELIZUMAB
     Indication: Relapsing-remitting multiple sclerosis
     Dosage: YES
     Route: 042
     Dates: start: 2017
  2. OCREVUS [Suspect]
     Active Substance: OCRELIZUMAB
     Dosage: DAY 1 AND DAY 15
     Route: 042
  3. OCREVUS [Suspect]
     Active Substance: OCRELIZUMAB
     Route: 042
  4. CLONAZEPAM [Suspect]
     Active Substance: CLONAZEPAM
     Indication: Muscle spasms
     Route: 048
  5. HUMALOG [Concomitant]
     Active Substance: INSULIN LISPRO
     Indication: Diabetes mellitus
     Dosage: PATIENT USES AN INSULIN PUMP WITH HUMALOG IN IT
  6. LISINOPRIL [Concomitant]
     Active Substance: LISINOPRIL
     Dosage: TAKEN IN THE AM
  7. DEXILANT [Concomitant]
     Active Substance: DEXLANSOPRAZOLE
     Indication: Gastrooesophageal reflux disease
  8. SINGULAIR [Concomitant]
     Active Substance: MONTELUKAST SODIUM
     Indication: Hypersensitivity
     Dosage: TAKEN IN THE PM
  9. LEVOCETIRIZINE [Concomitant]
     Active Substance: LEVOCETIRIZINE
     Dosage: TAKEN IN THE PM
  10. NORTRIPTYLINE [Concomitant]
     Active Substance: NORTRIPTYLINE
     Dosage: TAKEN IN THE PM
  11. LYRICA [Concomitant]
     Active Substance: PREGABALIN
  12. NUCYNTA ER [Concomitant]
     Active Substance: TAPENTADOL HYDROCHLORIDE
  13. NUCYNTA [Concomitant]
     Active Substance: TAPENTADOL HYDROCHLORIDE
     Indication: Pain
     Dosage: TAKEN IN THE MORNING
  14. RITALIN [Concomitant]
     Active Substance: METHYLPHENIDATE HYDROCHLORIDE
  15. BACLOFEN [Concomitant]
     Active Substance: BACLOFEN
  16. VITAMIN D3 [Concomitant]
     Active Substance: CHOLECALCIFEROL
     Indication: Multiple sclerosis
     Dosage: TAKEN IN THE AM
  17. BRILINTA [Concomitant]
     Active Substance: TICAGRELOR
  18. TOPROL XL [Concomitant]
     Active Substance: METOPROLOL SUCCINATE
     Dosage: TAKEN IN THE AM
  19. ASPIRIN [Concomitant]
     Active Substance: ASPIRIN
     Indication: Anticoagulant therapy
     Dosage: TAKEN IN THE AM
  20. LIPITOR [Concomitant]
     Active Substance: ATORVASTATIN CALCIUM
     Dosage: TAKEN IN THE PM

REACTIONS (12)
  - Staphylococcal infection [Recovered/Resolved]
  - Fall [Unknown]
  - Femur fracture [Recovered/Resolved]
  - Myocardial infarction [Recovering/Resolving]
  - Meniscus injury [Recovered/Resolved]
  - Chest pain [Unknown]
  - Fatigue [Not Recovered/Not Resolved]
  - Joint effusion [Recovered/Resolved]
  - Joint swelling [Recovered/Resolved]
  - Sinusitis [Recovered/Resolved]
  - Bronchitis [Recovered/Resolved]
  - Hypoglycaemia [Recovered/Resolved]

NARRATIVE: CASE EVENT DATE: 20170101
